FAERS Safety Report 10176417 (Version 1)
Quarter: 2014Q2

REPORT INFORMATION
  Report Type: Spontaneous
  Country: US (occurrence: US)
  Receive Date: 20140516
  Receipt Date: 20140516
  Transmission Date: 20141212
  Serious: Yes (Other)
  Sender: FDA-Public Use
  Company Number: US-TEVA-481741USA

PATIENT
  Age: 77 Year
  Sex: Male

DRUGS (6)
  1. DOXORUBICIN [Suspect]
     Indication: DIFFUSE LARGE B-CELL LYMPHOMA
     Dosage: DOSE-ADJUSTED; FOUR CYCLES, PART OF DA-EPOCH-R REGIMEN
     Route: 065
  2. VINCRISTINE [Suspect]
     Indication: DIFFUSE LARGE B-CELL LYMPHOMA
     Dosage: DOSE-ADJUSTED; FOUR CYCLES, PART OF DA-EPOCH-R REGIMEN
     Route: 065
  3. PREDNISONE [Suspect]
     Indication: DIFFUSE LARGE B-CELL LYMPHOMA
     Dosage: DOSE-ADJUSTED; FOUR CYCLES, PART OF DA-EPOCH-R REGIMEN
     Route: 065
  4. ETOPOSIDE [Concomitant]
     Indication: DIFFUSE LARGE B-CELL LYMPHOMA
     Dosage: DOSE-ADJUSTED; FOUR CYCLES, PART OF DA-EPOCH-R REGIMEN
     Route: 065
  5. CYCLOPHOSPHAMIDE [Concomitant]
     Indication: DIFFUSE LARGE B-CELL LYMPHOMA
     Dosage: DOSE-ADJUSTED; FOUR CYCLES, PART OF DA-EPOCH-R REGIMEN
     Route: 065
  6. RITUXIMAB [Concomitant]
     Indication: DIFFUSE LARGE B-CELL LYMPHOMA
     Dosage: DOSE-ADJUSTED; FOUR CYCLES, PART OF DA-EPOCH-R REGIMEN
     Route: 065

REACTIONS (1)
  - Diaphragm muscle weakness [Recovering/Resolving]
